FAERS Safety Report 10027376 (Version 2)
Quarter: 2014Q1

REPORT INFORMATION
  Report Type: Spontaneous
  Country: JP (occurrence: JP)
  Receive Date: 20140321
  Receipt Date: 20140321
  Transmission Date: 20141002
  Serious: Yes (Other)
  Sender: FDA-Public Use
  Company Number: JP-AMGEN-JPNSP2014010813

PATIENT
  Age: 40 Year
  Sex: Female
  Weight: 49 kg

DRUGS (9)
  1. PRALIA [Suspect]
     Indication: OSTEOPOROSIS
     Dosage: 60 MG, Q6MO
     Route: 058
     Dates: start: 20131202
  2. CALTAN [Concomitant]
     Indication: HYPERPHOSPHATAEMIA
     Dosage: 1 G, TID
     Route: 048
  3. PHOSBLOCK [Concomitant]
     Indication: HYPERPHOSPHATAEMIA
     Dosage: 1 G, TID
     Route: 048
  4. FOSRENOL [Concomitant]
     Indication: HYPERPHOSPHATAEMIA
     Dosage: 750 MG, TID
     Route: 048
  5. ARGAMATE [Concomitant]
     Indication: HYPERKALAEMIA
     Dosage: 25 G, QD
     Route: 048
  6. ROCALTROL [Concomitant]
     Indication: HYPERPARATHYROIDISM SECONDARY
     Dosage: 0.5 MUG, QD
     Route: 042
     Dates: start: 20131204
  7. REGPARA [Concomitant]
     Indication: HYPERPARATHYROIDISM SECONDARY
     Dosage: 25 MG, QD
     Route: 048
  8. OXAROL [Concomitant]
     Indication: HYPERPARATHYROIDISM SECONDARY
     Dosage: 20 MUG, QD
     Route: 042
     Dates: start: 20131211
  9. ONEALFA [Concomitant]
     Indication: HYPERPARATHYROIDISM SECONDARY
     Dosage: 0.25 MUG, QD
     Route: 048
     Dates: start: 20131209

REACTIONS (1)
  - Hypocalcaemia [Recovered/Resolved]
